FAERS Safety Report 4728136-6 (Version None)
Quarter: 2005Q3

REPORT INFORMATION
  Report Type: 
  Country: None (occurrence: None)
  Receive Date: 20050728
  Receipt Date: 20050728
  Transmission Date: 20060218
  Serious: Yes (Life-Threatening)
  Sender: FDA-Public Use
  Company Number: None

PATIENT
  Age: 57 Year
  Sex: Male

DRUGS (3)
  1. CYTARABINE [Suspect]
     Indication: ACUTE MYELOID LEUKAEMIA
     Dosage: 189 MG IV QD
     Route: 042
     Dates: start: 20050615, end: 20050622
  2. ETOPOSIDE [Suspect]
     Indication: ACUTE MYELOID LEUKAEMIA
     Dosage: 189 MG IV QD
     Route: 042
     Dates: start: 20050615, end: 20050617
  3. DAUNORUBICIN HCL [Suspect]
     Indication: ACUTE MYELOID LEUKAEMIA
     Dosage: 170MG QD IV
     Route: 042
     Dates: start: 20050615, end: 20050617

REACTIONS (7)
  - ATRIAL FIBRILLATION [None]
  - CARDIAC TAMPONADE [None]
  - DYSPNOEA [None]
  - ENTEROCOCCAL INFECTION [None]
  - HYPOTENSION [None]
  - PERICARDIAL EFFUSION [None]
  - PYREXIA [None]
